FAERS Safety Report 5162521-6 (Version None)
Quarter: 2006Q4

REPORT INFORMATION
  Report Type: 
  Country: None (occurrence: None)
  Receive Date: 20061121
  Receipt Date: 20061108
  Transmission Date: 20070319
  Serious: Yes (Other)
  Sender: FDA-Public Use
  Company Number: US-2006-034878

PATIENT
  Age: 68 Year
  Sex: Female

DRUGS (5)
  1. MAGNEVIST [Suspect]
     Indication: ANGIOGRAM
     Dosage: SEE IMAGE
     Dates: start: 20030501, end: 20030501
  2. MAGNEVIST [Suspect]
     Indication: ANGIOGRAM
     Dosage: SEE IMAGE
     Dates: start: 20050901, end: 20050901
  3. MAGNEVIST [Suspect]
     Indication: ANGIOGRAM
     Dosage: SEE IMAGE
     Dates: start: 20060101, end: 20060101
  4. ULTRAVIST (PHARMACY BULK) [Concomitant]
  5. NEURONTIN [Concomitant]

REACTIONS (3)
  - MOBILITY DECREASED [None]
  - NEPHROGENIC FIBROSING DERMOPATHY [None]
  - SYSTEMIC SCLEROSIS [None]
